FAERS Safety Report 21708620 (Version 2)
Quarter: 2022Q4

REPORT INFORMATION
  Report Type: Report from Study
  Country: US (occurrence: US)
  Receive Date: 20221210
  Receipt Date: 20221211
  Transmission Date: 20230113
  Serious: Yes (Other)
  Sender: FDA-Public Use
  Company Number: US-ABBVIE-4199944

PATIENT
  Age: 29 Year
  Sex: Female

DRUGS (2)
  1. SKYRIZI [Suspect]
     Active Substance: RISANKIZUMAB-RZAA
     Indication: Psoriasis
     Dosage: WEEK 4, FORM STRENGTH UNITS: 150 MILLIGRAM
     Route: 058
     Dates: start: 20221116
  2. SKYRIZI [Suspect]
     Active Substance: RISANKIZUMAB-RZAA
     Dosage: WEEK 0
     Route: 058
     Dates: start: 20221014, end: 20221014

REACTIONS (3)
  - Tendon rupture [Recovering/Resolving]
  - Psoriasis [Unknown]
  - Stress [Unknown]

NARRATIVE: CASE EVENT DATE: 20221112
